FAERS Safety Report 5315097-4 (Version None)
Quarter: 2007Q2

REPORT INFORMATION
  Report Type: 
  Country: None (occurrence: None)
  Receive Date: 20070502
  Receipt Date: 20070416
  Transmission Date: 20071010
  Serious: Yes (Hospitalization)
  Sender: FDA-Public Use
  Company Number: AU-BOEHRINGER INGELHEIM PHARMACEUTICALS, INC.-2007-BP-05245AU

PATIENT
  Sex: Male

DRUGS (2)
  1. APTIVUS/RITONAVIR CAPSULES [Suspect]
     Dosage: TPV/RTV 1000/400 MG
     Route: 048
  2. SUSTANON [Suspect]

REACTIONS (1)
  - SUBCUTANEOUS ABSCESS [None]
